FAERS Safety Report 13524102 (Version 1)
Quarter: 2017Q2

REPORT INFORMATION
  Report Type: Spontaneous
  Country: PL (occurrence: PL)
  Receive Date: 20170508
  Receipt Date: 20170508
  Transmission Date: 20170830
  Serious: Yes (Hospitalization)
  Sender: FDA-Public Use
  Company Number: PL-TEVA-765122ISR

PATIENT
  Age: 1 Year
  Sex: Female
  Weight: 11 kg

DRUGS (2)
  1. NEBBUD [Suspect]
     Active Substance: BUDESONIDE
     Route: 055
     Dates: start: 20170321, end: 20170321
  2. NEBBUD [Suspect]
     Active Substance: BUDESONIDE
     Indication: ASTHMA
     Route: 055
     Dates: start: 20170226, end: 20170226

REACTIONS (3)
  - Dyspnoea [Recovered/Resolved]
  - Product substitution issue [Unknown]
  - Cyanosis [Recovered/Resolved]

NARRATIVE: CASE EVENT DATE: 20170226
